FAERS Safety Report 18745943 (Version 1)
Quarter: 2021Q1

REPORT INFORMATION
  Report Type: Spontaneous
  Country: US (occurrence: US)
  Receive Date: 20210114
  Receipt Date: 20210114
  Transmission Date: 20210419
  Serious: No
  Sender: FDA-Public Use
  Company Number: None

PATIENT
  Age: 40 Year
  Sex: Male
  Weight: 56.25 kg

DRUGS (1)
  1. BAMLANIVIMAB. [Suspect]
     Active Substance: BAMLANIVIMAB
     Indication: COVID-19
     Route: 041
     Dates: start: 20210114, end: 20210114

REACTIONS (3)
  - Pyrexia [None]
  - Nausea [None]
  - Tachycardia [None]

NARRATIVE: CASE EVENT DATE: 20210114
